FAERS Safety Report 7805456-X (Version None)
Quarter: 2011Q4

REPORT INFORMATION
  Report Type: 
  Country: None (occurrence: None)
  Receive Date: 20111010
  Receipt Date: 20110927
  Transmission Date: 20120403
  Serious: Yes (Other)
  Sender: FDA-Public Use
  Company Number: PHEH2011US05264

PATIENT
  Sex: Female
  Weight: 63.039 kg

DRUGS (13)
  1. XANAX [Concomitant]
     Dosage: 0.5 MG, UNK
  2. NAPROXEN (ALEVE) [Concomitant]
     Dosage: 220 MG, UNK
  3. GILENYA [Suspect]
     Dosage: 0.5 MG, ONE CAP EVERY DAY
  4. EFFIENT [Concomitant]
     Dosage: 10 MG, UNK
  5. CRESTOR [Concomitant]
     Dosage: 20 MG, UNK
  6. RANEXA [Concomitant]
     Dosage: 1000 MG, UNK
  7. TOPAMAX [Concomitant]
     Dosage: 200 MG, UNK
  8. ISOSORBIDE MONONITRATE [Concomitant]
     Dosage: 60 MG, UNK
  9. TRAZODONE HYDROCHLORIDE [Concomitant]
     Dosage: 100 MG, UNK
  10. TOPROL-XL [Concomitant]
     Dosage: 25 MG, UNK
  11. KEPPRA [Concomitant]
     Dosage: 1000 MG, UNK
  12. ASPIRIN [Concomitant]
     Dosage: 81 MG, UNK
  13. LISINOPRIL [Concomitant]
     Dosage: 2.5 MG, UNK

REACTIONS (1)
  - MYOCARDIAL INFARCTION [None]
